FAERS Safety Report 6717472-X (Version None)
Quarter: 2010Q2

REPORT INFORMATION
  Report Type: 
  Country: None (occurrence: None)
  Receive Date: 20100510
  Receipt Date: 20100430
  Transmission Date: 20101027
  Serious: Yes (Life-Threatening)
  Sender: FDA-Public Use
  Company Number: JP-ABBOTT-10P-087-0641658-00

PATIENT
  Age: 46 Year
  Sex: Female

DRUGS (6)
  1. AKINETON [Suspect]
     Indication: SCHIZOPHRENIA
     Route: 048
  2. BROMAZEPAM [Suspect]
     Indication: SCHIZOPHRENIA
     Route: 048
  3. HALOPERIDOL DECANOATE [Suspect]
     Indication: SCHIZOPHRENIA
     Route: 030
  4. LOSARTAN POTASSIUM [Concomitant]
     Indication: HYPERTENSION
     Route: 048
  5. THYROID TAB [Concomitant]
     Indication: HYPOTHYROIDISM
     Dosage: DRIED
     Route: 048
  6. INSULIN [Concomitant]
     Indication: DIABETES MELLITUS
     Route: 030

REACTIONS (1)
  - NEUROLEPTIC MALIGNANT SYNDROME [None]
